FAERS Safety Report 13155446 (Version 1)
Quarter: 2017Q1

REPORT INFORMATION
  Report Type: Spontaneous
  Country: JP (occurrence: JP)
  Receive Date: 20170126
  Receipt Date: 20170126
  Transmission Date: 20170428
  Serious: Yes (Death, Hospitalization, Other)
  Sender: FDA-Public Use
  Company Number: JP-MYLANLABS-2017M1004526

PATIENT

DRUGS (3)
  1. BETAMETHASONE. [Suspect]
     Active Substance: BETAMETHASONE
     Indication: PRODUCT USED FOR UNKNOWN INDICATION
     Dosage: 12MG/DAY
     Route: 042
  2. VORICONAZOLE. [Interacting]
     Active Substance: VORICONAZOLE
     Indication: SINUSITIS ASPERGILLUS
     Route: 065
  3. CEFTRIAXONE. [Interacting]
     Active Substance: CEFTRIAXONE
     Indication: SINUSITIS ASPERGILLUS
     Dosage: 2 G/DAY
     Route: 065

REACTIONS (7)
  - Brain oedema [Unknown]
  - Sinusitis aspergillus [Fatal]
  - Subarachnoid haemorrhage [Unknown]
  - Intracranial aneurysm [Unknown]
  - Drug interaction [Unknown]
  - Cardio-respiratory arrest [Fatal]
  - Treatment failure [Unknown]
